FAERS Safety Report 25860540 (Version 1)
Quarter: 2025Q3

REPORT INFORMATION
  Report Type: Spontaneous
  Country: US (occurrence: None)
  Receive Date: 20250928
  Receipt Date: 20250928
  Transmission Date: 20251021
  Serious: Yes (Other)
  Sender: FDA-CTU
  Company Number: None

PATIENT
  Age: 58 Year
  Sex: Female
  Weight: 57.6 kg

DRUGS (4)
  1. WEGOVY [Suspect]
     Active Substance: SEMAGLUTIDE
     Indication: Obesity
     Route: 058
     Dates: start: 20250916, end: 20250923
  2. Metoprolol Succ Er 25mg [Concomitant]
  3. ATORVASTATIN [Concomitant]
     Active Substance: ATORVASTATIN
  4. One A Day women^s vitamin [Concomitant]

REACTIONS (4)
  - Urticaria [None]
  - Swollen tongue [None]
  - Headache [None]
  - Palpitations [None]

NARRATIVE: CASE EVENT DATE: 20250916
